FAERS Safety Report 6684846-5 (Version None)
Quarter: 2010Q2

REPORT INFORMATION
  Report Type: 
  Country: None (occurrence: None)
  Receive Date: 20100416
  Receipt Date: 20100408
  Transmission Date: 20101027
  Serious: Yes (Other)
  Sender: FDA-Public Use
  Company Number: US-BRISTOL-MYERS SQUIBB COMPANY-15055445

PATIENT
  Age: 62 Year
  Sex: Female

DRUGS (1)
  1. ONGLYZA [Suspect]
     Indication: TYPE 2 DIABETES MELLITUS

REACTIONS (1)
  - DEPRESSION [None]
